FAERS Safety Report 24984827 (Version 1)
Quarter: 2025Q1

REPORT INFORMATION
  Report Type: Report from Study
  Country: US (occurrence: US)
  Receive Date: 20250219
  Receipt Date: 20250219
  Transmission Date: 20250409
  Serious: Yes (Other)
  Sender: ALEXION PHARMACEUTICALS
  Company Number: US-ASTRAZENECA-202502USA013875US

PATIENT
  Age: 44 Year

DRUGS (1)
  1. STRENSIQ [Suspect]
     Active Substance: ASFOTASE ALFA
     Indication: Phosphorus metabolism disorder
     Dosage: 98 MILLIGRAM, TIW
     Route: 065

REACTIONS (3)
  - Cataract [Unknown]
  - Dizziness [Unknown]
  - Nodule [Unknown]
